FAERS Safety Report 7444896-8 (Version None)
Quarter: 2011Q2

REPORT INFORMATION
  Report Type: 
  Country: None (occurrence: None)
  Receive Date: 20110429
  Receipt Date: 20110418
  Transmission Date: 20111010
  Serious: Yes (Other)
  Sender: FDA-Public Use
  Company Number: PHHY2011US33459

PATIENT
  Sex: Female
  Weight: 66 kg

DRUGS (1)
  1. EXJADE [Suspect]
     Indication: NEOPLASM
     Dosage: 2 DF
     Route: 048
     Dates: start: 20110225

REACTIONS (1)
  - HAEMATOCHEZIA [None]
